FAERS Safety Report 7753013-6 (Version None)
Quarter: 2011Q3

REPORT INFORMATION
  Report Type: 
  Country: None (occurrence: None)
  Receive Date: 20110915
  Receipt Date: 20110912
  Transmission Date: 20111222
  Serious: Yes (Other)
  Sender: FDA-Public Use
  Company Number: BR-PFIZER INC-2011215152

PATIENT
  Age: 46 Year
  Sex: Female
  Weight: 124 kg

DRUGS (5)
  1. VEROTINA [Concomitant]
     Indication: HYPERTENSION
     Dosage: 100 MG, 1X/DAY
  2. VARENICLINE TARTRATE [Suspect]
     Indication: SMOKING CESSATION THERAPY
     Dosage: UNK
     Route: 048
     Dates: start: 20110906
  3. METFORMIN HYDROCHLORIDE [Concomitant]
     Indication: DIABETES MELLITUS
     Dosage: 1000MG, 1X/DAY
     Dates: start: 20110501
  4. PRESSAT [Concomitant]
     Indication: HYPERTENSION
     Dosage: 5 MG, 1X/DAY
     Dates: start: 20110909
  5. ARADOIS H [Concomitant]
     Indication: HYPERTENSION
     Dosage: 100 MG, 1X/DAY

REACTIONS (1)
  - HYPERTENSION [None]
